FAERS Safety Report 4429549-2 (Version None)
Quarter: 2004Q3

REPORT INFORMATION
  Report Type: 
  Country: None (occurrence: None)
  Receive Date: 20040819
  Receipt Date: 20040709
  Transmission Date: 20050211
  Serious: Yes (Hospitalization)
  Sender: FDA-Public Use
  Company Number: JP-GLAXOSMITHKLINE-B0338857A

PATIENT
  Age: 77 Year
  Sex: Male
  Weight: 59 kg

DRUGS (13)
  1. VALTREX [Suspect]
     Indication: HERPES ZOSTER
     Route: 048
     Dates: start: 20040705, end: 20040706
  2. POLARAMINE [Suspect]
     Dosage: 6MG PER DAY
     Route: 048
  3. ALLOID G [Concomitant]
     Indication: GASTRODUODENAL ULCER
     Dosage: 10ML THREE TIMES PER DAY
     Route: 048
  4. BULKOSOL [Concomitant]
     Indication: CONSTIPATION
     Dosage: 2CAP THREE TIMES PER DAY
     Route: 048
  5. TANKARU [Concomitant]
     Indication: BLOOD PHOSPHORUS INCREASED
     Dosage: 1000MG THREE TIMES PER DAY
     Route: 048
  6. NORVASC [Concomitant]
     Indication: HYPERTENSION
     Dosage: 5MG TWICE PER DAY
     Route: 048
  7. ULGUT [Concomitant]
     Indication: GASTRIC ULCER
     Dosage: 200MG TWICE PER DAY
     Route: 048
  8. PERYCIT [Concomitant]
     Indication: BLOOD PHOSPHORUS INCREASED
     Dosage: 125MG TWICE PER DAY
     Route: 048
  9. GASTER [Concomitant]
     Indication: GASTRIC ULCER
     Dosage: 10MG PER DAY
     Route: 048
  10. DIGOXIN [Concomitant]
     Indication: ARRHYTHMIA
     Dosage: .125MG THREE TIMES PER WEEK
     Route: 048
  11. ACECOL [Concomitant]
     Indication: HYPERTENSION
     Dosage: 1MG TWICE PER DAY
     Route: 048
  12. NITRODERM [Concomitant]
     Indication: ANGINA PECTORIS
     Dosage: 25MG PER DAY
     Route: 062
  13. IBUPROFEN [Concomitant]
     Route: 061
     Dates: start: 20040705

REACTIONS (7)
  - COORDINATION ABNORMAL [None]
  - DECREASED APPETITE [None]
  - DEPRESSED LEVEL OF CONSCIOUSNESS [None]
  - DYSARTHRIA [None]
  - EATING DISORDER [None]
  - OVERDOSE [None]
  - RESTLESSNESS [None]
